FAERS Safety Report 10066851 (Version 1)
Quarter: 2014Q2

REPORT INFORMATION
  Report Type: Spontaneous
  Country: US (occurrence: US)
  Receive Date: 20140408
  Receipt Date: 20140408
  Transmission Date: 20141212
  Serious: No
  Sender: FDA-Public Use
  Company Number: US-TEVA-473710USA

PATIENT
  Age: 33 Year
  Sex: Female
  Weight: 54.93 kg

DRUGS (3)
  1. PROAIR HFA [Suspect]
     Indication: NASAL CONGESTION
     Dosage: 2 PUFFS AS NEEDED, BUT NOT MORE THAN 4 TIMES A DAY
     Route: 055
     Dates: start: 20140402
  2. PROAIR HFA [Suspect]
     Indication: ASTHMA
  3. HORMONES NOS [Concomitant]
     Indication: PREGNANCY

REACTIONS (2)
  - Cough [Not Recovered/Not Resolved]
  - Pregnancy [Unknown]
